FAERS Safety Report 7962474-9 (Version None)
Quarter: 2011Q4

REPORT INFORMATION
  Report Type: 
  Country: None (occurrence: None)
  Receive Date: 20111207
  Receipt Date: 20111130
  Transmission Date: 20120403
  Serious: Yes (Death, Hospitalization)
  Sender: FDA-Public Use
  Company Number: US-GLAXOSMITHKLINE-A0882137A

PATIENT
  Sex: Female
  Weight: 75.9 kg

DRUGS (1)
  1. AVANDIA [Suspect]
     Indication: DIABETES MELLITUS
     Dosage: 4MG PER DAY
     Route: 048
     Dates: start: 20020128, end: 20040406

REACTIONS (4)
  - HYPERGLYCAEMIA [None]
  - CARDIAC FAILURE [None]
  - PANCREATITIS CHRONIC [None]
  - DIABETES MELLITUS [None]
